FAERS Safety Report 4983570-4 (Version None)
Quarter: 2006Q2

REPORT INFORMATION
  Report Type: 
  Country: None (occurrence: None)
  Receive Date: 20060425
  Receipt Date: 20060425
  Transmission Date: 20061013
  Serious: Yes (Other)
  Sender: FDA-Public Use
  Company Number: None

PATIENT
  Age: 75 Year
  Sex: Male
  Weight: 90.7 kg

DRUGS (8)
  1. ATORVASTATIN CALCIUM [Suspect]
  2. FUROSEMIDE [Concomitant]
  3. OMEPRAZOLE [Concomitant]
  4. FELODIPINE [Concomitant]
  5. LISINOPRIL [Concomitant]
  6. ASPIRIN / DIPYRIDAMOLE [Concomitant]
  7. GLYBURIDE [Concomitant]
  8. ATENOLOL [Concomitant]

REACTIONS (1)
  - MYALGIA [None]
